FAERS Safety Report 11055924 (Version 2)
Quarter: 2015Q2

REPORT INFORMATION
  Report Type: Report from Study
  Country: US (occurrence: US)
  Receive Date: 20150422
  Receipt Date: 20150428
  Transmission Date: 20150821
  Serious: Yes (Other)
  Sender: FDA-Public Use
  Company Number: US-ABBVIE-15K-163-1377493-00

PATIENT
  Sex: Female
  Weight: 52.21 kg

DRUGS (4)
  1. PRENATAL VITAMINS [Concomitant]
     Active Substance: VITAMINS
     Indication: VITAMIN SUPPLEMENTATION
  2. HUMIRA [Suspect]
     Active Substance: ADALIMUMAB
     Indication: CROHN^S DISEASE
     Route: 065
     Dates: start: 201304, end: 201304
  3. HUMIRA [Suspect]
     Active Substance: ADALIMUMAB
     Dosage: TWO WEEKS AFTER 160 MG DOSE
     Route: 065
     Dates: start: 2013, end: 2013
  4. HUMIRA [Suspect]
     Active Substance: ADALIMUMAB
     Dosage: FOUR WEEKS AFTER 160 MG DOSE
     Route: 065
     Dates: start: 2013, end: 201410

REACTIONS (7)
  - Crohn^s disease [Recovered/Resolved]
  - Drug effect incomplete [Unknown]
  - Abscess [Unknown]
  - Proctitis [Unknown]
  - Pouchitis [Unknown]
  - Intestinal stenosis [Not Recovered/Not Resolved]
  - Intestinal prolapse [Not Recovered/Not Resolved]

NARRATIVE: CASE EVENT DATE: 2013
